FAERS Safety Report 10551164 (Version 1)
Quarter: 2014Q4

REPORT INFORMATION
  Report Type: Spontaneous
  Country: US (occurrence: None)
  Receive Date: 20141028
  Receipt Date: 20141028
  Transmission Date: 20150529
  Serious: No
  Sender: FDA-Public Use
  Company Number: None

PATIENT
  Age: 36 Year
  Sex: Female
  Weight: 58.97 kg

DRUGS (2)
  1. BUPROPION HYDROCHLORIDE (SR) [Suspect]
     Active Substance: BUPROPION HYDROCHLORIDE
     Indication: ANXIETY
     Dosage: 3 PILLS?ONCE DAILY?TAKEN WITH MOUTH
     Route: 048
     Dates: start: 20141001, end: 20141026
  2. BUPROPION HYDROCHLORIDE (SR) [Suspect]
     Active Substance: BUPROPION HYDROCHLORIDE
     Indication: DEPRESSION
     Dosage: 3 PILLS?ONCE DAILY?TAKEN WITH MOUTH
     Route: 048
     Dates: start: 20141001, end: 20141026

REACTIONS (6)
  - Decreased activity [None]
  - Suicidal behaviour [None]
  - Depression [None]
  - Tearfulness [None]
  - Product formulation issue [None]
  - Product substitution issue [None]

NARRATIVE: CASE EVENT DATE: 20141017
